FAERS Safety Report 19908839 (Version 1)
Quarter: 2021Q4

REPORT INFORMATION
  Report Type: Spontaneous
  Country: RU (occurrence: RU)
  Receive Date: 20211001
  Receipt Date: 20211001
  Transmission Date: 20220303
  Serious: Yes (Other)
  Sender: FDA-Public Use
  Company Number: RU-BAYER-2021A218853

PATIENT
  Age: 65 Year
  Sex: Female

DRUGS (5)
  1. REGORAFENIB [Suspect]
     Active Substance: REGORAFENIB
     Indication: Uterine leiomyosarcoma
     Dosage: DAILY DOSE 80 MG
     Route: 048
     Dates: start: 201909, end: 201912
  2. REGORAFENIB [Suspect]
     Active Substance: REGORAFENIB
     Indication: Uterine leiomyosarcoma
     Dosage: DAILY DOSE 80 MG
     Route: 048
     Dates: start: 201912, end: 202002
  3. REGORAFENIB [Suspect]
     Active Substance: REGORAFENIB
     Indication: Uterine leiomyosarcoma
     Dosage: DAILY DOSE 80 MG
     Route: 048
     Dates: start: 202007, end: 202009
  4. REGORAFENIB [Suspect]
     Active Substance: REGORAFENIB
     Indication: Uterine leiomyosarcoma
     Dosage: DAILY DOSE 80 MG
     Route: 048
     Dates: start: 202101
  5. PAZOPANIB [Suspect]
     Active Substance: PAZOPANIB
     Dosage: UNK
     Dates: start: 202009, end: 202012

REACTIONS (9)
  - Hypertension [Recovered/Resolved]
  - Gastrointestinal toxicity [Recovered/Resolved]
  - Stomatitis [Recovered/Resolved]
  - Cheilitis [Recovered/Resolved]
  - Off label use [None]
  - Hypertension [Recovered/Resolved]
  - Gastrointestinal toxicity [Recovered/Resolved]
  - Stomatitis [Recovered/Resolved]
  - Cheilitis [Recovered/Resolved]

NARRATIVE: CASE EVENT DATE: 20200101
